FAERS Safety Report 8828343 (Version 1)
Quarter: 2012Q4

REPORT INFORMATION
  Report Type: 
  Country: US (occurrence: US)
  Receive Date: 20121005
  Receipt Date: 20121005
  Transmission Date: 20130627
  Serious: No
  Sender: FDA-Public Use
  Company Number: US-PFIZER INC-2012244730

PATIENT
  Age: 82 Year
  Sex: Female
  Weight: 72.56 kg

DRUGS (14)
  1. FLECTOR [Suspect]
     Indication: ARTHRITIS
     Dosage: UNK, 2x/day
     Dates: start: 2010, end: 201209
  2. HYDROCODONE W/ACETAMINOPHEN [Concomitant]
     Dosage: UNK
  3. OXYCONTIN [Concomitant]
     Dosage: 30 mg in a day
  4. LEVOTHYROXINE [Concomitant]
     Dosage: UNK
  5. AMLODIPINE [Concomitant]
     Dosage: UNK
  6. ATORVASTATIN [Concomitant]
     Dosage: UNK
  7. FUROSEMIDE [Concomitant]
     Dosage: UNK
  8. MAGNESIUM [Concomitant]
     Dosage: UNK
  9. VITAMIN B [Concomitant]
     Dosage: UNK
  10. VITAMIN D [Concomitant]
     Dosage: UNK
  11. VITAMIN E [Concomitant]
     Dosage: UNK
  12. OCUVITE [Concomitant]
     Dosage: UNK
  13. CRANBERRY [Concomitant]
     Dosage: UNK
  14. OSTEO BI-FLEX [Concomitant]
     Dosage: UNK

REACTIONS (2)
  - Pruritus [Recovered/Resolved]
  - Reaction to drug excipients [Unknown]
